FAERS Safety Report 4907752-2 (Version None)
Quarter: 2006Q1

REPORT INFORMATION
  Report Type: 
  Country: None (occurrence: None)
  Receive Date: 20060208
  Receipt Date: 20060208
  Transmission Date: 20060701
  Serious: Yes (Hospitalization)
  Sender: FDA-Public Use
  Company Number: None

PATIENT
  Sex: Male
  Weight: 95.2554 kg

DRUGS (4)
  1. IRESSA [Suspect]
  2. CISPLATIN [Suspect]
  3. FLUOROURACIL [Suspect]
  4. RADIATION [Suspect]

REACTIONS (5)
  - ABDOMINAL TENDERNESS [None]
  - DIARRHOEA [None]
  - HAEMATEMESIS [None]
  - SMALL INTESTINAL OBSTRUCTION [None]
  - UPPER GASTROINTESTINAL HAEMORRHAGE [None]
